FAERS Safety Report 4295823-6 (Version None)
Quarter: 2004Q1

REPORT INFORMATION
  Report Type: 
  Country: None (occurrence: None)
  Receive Date: 20040216
  Receipt Date: 20031113
  Transmission Date: 20041129
  Serious: No
  Sender: FDA-Public Use
  Company Number: US-GLAXOSMITHKLINE-A0439654A

PATIENT
  Sex: Male

DRUGS (1)
  1. LAMICTAL [Suspect]
     Dates: start: 20031030

REACTIONS (3)
  - FLUSHING [None]
  - MOUTH ULCERATION [None]
  - RASH [None]
